FAERS Safety Report 7913657-5 (Version None)
Quarter: 2011Q4

REPORT INFORMATION
  Report Type: 
  Country: None (occurrence: None)
  Receive Date: 20111115
  Receipt Date: 20111108
  Transmission Date: 20120403
  Serious: Yes (Death, Hospitalization)
  Sender: FDA-Public Use
  Company Number: US-CELGENEUS-163-21880-11032628

PATIENT
  Sex: Female
  Weight: 83.99 kg

DRUGS (51)
  1. PROTONIX [Concomitant]
     Route: 065
  2. SERTRALINE HYDROCHLORIDE [Concomitant]
     Indication: ANXIETY
  3. ACETAMINOPHEN [Concomitant]
     Route: 065
  4. PLATELETS [Concomitant]
     Route: 041
     Dates: start: 20110301, end: 20110301
  5. BUDESONIDE FORMOTEROL [Concomitant]
     Dosage: 2 PUFF
     Route: 055
  6. LORAZEPAM [Concomitant]
     Dosage: .5 MILLIGRAM
     Route: 041
  7. FENTANYL [Concomitant]
     Dosage: 50 MCG/HR
     Route: 065
     Dates: start: 20110630
  8. KLOR-CON [Concomitant]
     Route: 065
  9. VALTREX [Concomitant]
     Indication: PROPHYLAXIS
     Route: 065
  10. VORICONAZOLE [Concomitant]
     Indication: SEPSIS
     Dosage: 300 MILLIGRAM
     Route: 065
  11. NOREPINEPHRINE BITARTRATE [Concomitant]
     Dosage: 35 MCG/MIN.
     Route: 065
     Dates: start: 20110630
  12. FILGRASTIM [Concomitant]
     Dosage: 480 MICROGRAM
     Route: 058
  13. DEXAMETHASONE [Concomitant]
     Route: 065
  14. FOLIC ACID [Concomitant]
     Route: 065
  15. MAG-OX [Concomitant]
     Route: 065
  16. NASONEX [Concomitant]
     Route: 065
  17. ROXICODONE [Concomitant]
     Route: 065
  18. SYNTHROID [Concomitant]
     Dosage: 37.5 MICROGRAM
     Route: 041
  19. VALTREX [Concomitant]
     Dosage: 500 MILLIGRAM
     Route: 065
  20. VITAMIN D [Concomitant]
     Route: 065
  21. PHYTONADIONE [Concomitant]
     Dosage: 5 MILLIGRAM
     Route: 041
  22. GENTAMICIN [Concomitant]
     Dosage: 60 MILLIGRAM
     Route: 041
  23. PROTONIX [Concomitant]
     Dosage: 40 MILLIGRAM
     Route: 041
  24. SINGULAIR [Concomitant]
     Route: 065
  25. AUGMENTIN [Concomitant]
     Route: 048
     Dates: start: 20110301
  26. VANCOMYCIN [Concomitant]
     Dosage: 1000 MILLIGRAM
     Route: 041
  27. REVLIMID [Suspect]
     Indication: LYMPHOMA
     Dosage: 20 MILLIGRAM
     Route: 048
     Dates: start: 20110215
  28. REVLIMID [Suspect]
     Route: 048
     Dates: start: 20110301
  29. BACTRIM [Concomitant]
     Route: 065
  30. CALCIUM [Concomitant]
     Route: 065
  31. CODEINE SUL TAB [Concomitant]
     Indication: COUGH
     Route: 065
  32. COLACE [Concomitant]
     Route: 065
  33. M.V.I. [Concomitant]
     Route: 065
  34. PROCHLORPERAZINE [Concomitant]
     Route: 065
  35. SERTRALINE HYDROCHLORIDE [Concomitant]
     Indication: DEPRESSION
     Route: 065
  36. SYNTHROID [Concomitant]
     Route: 065
  37. ZOSYN [Concomitant]
     Indication: SEPSIS
     Route: 065
  38. SYMBICORT [Concomitant]
     Route: 065
  39. HYDROCORTISONE SODIUM [Concomitant]
     Dosage: 50 MILLIGRAM/MILLILITERS
     Route: 065
  40. SIMVASTATIN [Concomitant]
     Route: 065
  41. ALBUTEROL [Concomitant]
     Route: 065
  42. LORAZEPAM [Concomitant]
     Route: 065
  43. MIDAZOLAM [Concomitant]
     Dosage: 1MG/HR
     Route: 065
  44. SODIUM CHLORIDE [Concomitant]
     Dosage: 250 MILLILITER
     Route: 040
  45. PIPERACILLIN AND TAZOBACTAM [Concomitant]
     Dosage: 2.25 GRAM
     Route: 041
  46. LINEZOLID [Concomitant]
     Dosage: 600 MILLIGRAM
     Route: 065
  47. FLUCONAZOLE [Concomitant]
     Route: 065
  48. GABAPENTIN [Concomitant]
     Route: 065
  49. SENNA [Concomitant]
     Route: 065
  50. ZOFRAN [Concomitant]
     Route: 065
  51. TRIAMCINOLONE [Concomitant]
     Route: 061

REACTIONS (15)
  - SPLENOMEGALY [None]
  - SUPRAVENTRICULAR TACHYCARDIA [None]
  - ENTEROCOCCAL SEPSIS [None]
  - ORGAN FAILURE [None]
  - HYPOXIA [None]
  - LYMPHOMA [None]
  - NEUTROPENIA [None]
  - CHRONIC SINUSITIS [None]
  - HAEMOGLOBIN DECREASED [None]
  - MENTAL STATUS CHANGES [None]
  - WHITE BLOOD CELL COUNT DECREASED [None]
  - NEOPLASM PROGRESSION [None]
  - ACIDOSIS [None]
  - PLATELET COUNT DECREASED [None]
  - HAEMATOCRIT DECREASED [None]
